FAERS Safety Report 4730904-1 (Version None)
Quarter: 2005Q3

REPORT INFORMATION
  Report Type: 
  Country: None (occurrence: None)
  Receive Date: 20050720
  Receipt Date: 20050518
  Transmission Date: 20060218
  Serious: Yes (Hospitalization)
  Sender: FDA-Public Use
  Company Number: IMP_0863_2005

PATIENT
  Age: 61 Year
  Sex: Female
  Weight: 83.2 kg

DRUGS (9)
  1. OXYCODONE [Suspect]
     Indication: PAIN
     Dosage: DF UNK PO
     Route: 048
  2. LIPOSOME ENTRAPPED PACLITAXEL EASY TO USE (LEP-ETU) [Suspect]
     Indication: NEOPLASM
     Dosage: UNK
     Route: 065
     Dates: start: 20050314
  3. TAXOL [Suspect]
     Indication: NEOPLASM
     Dosage: UNK
     Route: 065
  4. OXYCONTIN [Concomitant]
  5. FERROUS SULFATE TAB [Concomitant]
  6. SENOKOT [Concomitant]
  7. COLACE [Concomitant]
  8. MILK OF MAGNESIA TAB [Concomitant]
  9. LACTULOSE [Concomitant]

REACTIONS (3)
  - BACTERAEMIA [None]
  - CONSTIPATION [None]
  - PELVIC ABSCESS [None]
